FAERS Safety Report 11592406 (Version 1)
Quarter: 2015Q4

REPORT INFORMATION
  Report Type: Spontaneous
  Country: CZ (occurrence: CZ)
  Receive Date: 20151005
  Receipt Date: 20151005
  Transmission Date: 20160304
  Serious: Yes (Death, Hospitalization, Other)
  Sender: FDA-Public Use
  Company Number: CZ-ALEMBIC PHARMACUETICALS LIMITED-2015SCAL000681

PATIENT
  Age: 14 Year
  Sex: Female

DRUGS (2)
  1. METOPROLOL TARTRATE. [Suspect]
     Active Substance: METOPROLOL TARTRATE
     Indication: PRODUCT USED FOR UNKNOWN INDICATION
     Dosage: PROBABLY 1000 MG
     Route: 048
  2. PROPAFENONE. [Suspect]
     Active Substance: PROPAFENONE
     Indication: PRODUCT USED FOR UNKNOWN INDICATION
     Dosage: PROBABLY 1500-3000 MG
     Route: 048

REACTIONS (10)
  - Acute kidney injury [Fatal]
  - Electrocardiogram QRS complex prolonged [Unknown]
  - Completed suicide [Fatal]
  - Drug interaction [Unknown]
  - Intentional overdose [Fatal]
  - Brain oedema [Fatal]
  - Loss of consciousness [Unknown]
  - Seizure [Unknown]
  - Cardiac arrest [Fatal]
  - Toxicity to various agents [Fatal]
